FAERS Safety Report 12085642 (Version 10)
Quarter: 2017Q2

REPORT INFORMATION
  Report Type: Report from Study
  Country: US (occurrence: US)
  Receive Date: 20160217
  Receipt Date: 20170602
  Transmission Date: 20170829
  Serious: Yes (Hospitalization, Other)
  Sender: FDA-Public Use
  Company Number: US-B.I. PHARMACEUTICALS,INC./RIDGEFIELD-2015-BI-63886BP

PATIENT
  Age: 66 Year
  Sex: Female
  Weight: 83.91 kg

DRUGS (9)
  1. OFEV [Suspect]
     Active Substance: NINTEDANIB
     Route: 048
  2. OFEV [Suspect]
     Active Substance: NINTEDANIB
     Route: 048
  3. OFEV [Suspect]
     Active Substance: NINTEDANIB
     Route: 048
     Dates: start: 20151103
  4. OFEV [Suspect]
     Active Substance: NINTEDANIB
     Route: 048
     Dates: start: 20151111, end: 20151114
  5. OFEV [Suspect]
     Active Substance: NINTEDANIB
     Route: 048
     Dates: start: 20151117
  6. OFEV [Suspect]
     Active Substance: NINTEDANIB
     Indication: IDIOPATHIC PULMONARY FIBROSIS
     Route: 048
     Dates: start: 201510
  7. OFEV [Suspect]
     Active Substance: NINTEDANIB
     Route: 048
  8. OFEV [Suspect]
     Active Substance: NINTEDANIB
     Route: 048
     Dates: start: 20151118
  9. OFEV [Suspect]
     Active Substance: NINTEDANIB
     Route: 048
     Dates: start: 20151103

REACTIONS (40)
  - Tachycardia [Unknown]
  - Vomiting [Not Recovered/Not Resolved]
  - Oxygen saturation decreased [Not Recovered/Not Resolved]
  - Breast pain [Unknown]
  - Decreased appetite [Unknown]
  - Incorrect dose administered [Unknown]
  - Respiratory disorder [Unknown]
  - Nausea [Not Recovered/Not Resolved]
  - Diarrhoea [Unknown]
  - Fibrosis [Unknown]
  - Pulmonary hypertension [Unknown]
  - Ear pain [Unknown]
  - Nail infection [Unknown]
  - Dyspnoea [Unknown]
  - Heart rate increased [Unknown]
  - Urinary incontinence [Unknown]
  - Skin burning sensation [Unknown]
  - Constipation [Unknown]
  - Abdominal pain upper [Not Recovered/Not Resolved]
  - Abdominal pain upper [Unknown]
  - Cough [Unknown]
  - Oxygen saturation decreased [Unknown]
  - Blood pressure increased [Unknown]
  - Ear pain [Not Recovered/Not Resolved]
  - Headache [Not Recovered/Not Resolved]
  - Blood pressure increased [Not Recovered/Not Resolved]
  - Nausea [Unknown]
  - Headache [Not Recovered/Not Resolved]
  - Malaise [Unknown]
  - Dysgeusia [Unknown]
  - Hypotension [Not Recovered/Not Resolved]
  - Hypoaesthesia [Unknown]
  - Decreased activity [Unknown]
  - Headache [Unknown]
  - Diarrhoea [Not Recovered/Not Resolved]
  - Diarrhoea [Not Recovered/Not Resolved]
  - Muscle spasms [Not Recovered/Not Resolved]
  - Dyspepsia [Unknown]
  - Urine odour abnormal [Unknown]
  - Cystitis [Unknown]

NARRATIVE: CASE EVENT DATE: 20151111
